FAERS Safety Report 7587021-5 (Version None)
Quarter: 2011Q3

REPORT INFORMATION
  Report Type: 
  Country: None (occurrence: None)
  Receive Date: 20110701
  Receipt Date: 20110624
  Transmission Date: 20111222
  Serious: Yes (Hospitalization)
  Sender: FDA-Public Use
  Company Number: PHHO2010US13813

PATIENT
  Sex: Male
  Weight: 84.5 kg

DRUGS (8)
  1. TASIGNA [Suspect]
     Dosage: 400 MG, QD
     Route: 048
     Dates: start: 20101118
  2. METOPROLOL TARTRATE [Concomitant]
     Indication: CHEST PAIN
     Dosage: UNK
     Dates: start: 20100902
  3. TASIGNA [Suspect]
     Dosage: 400 MG, QD
     Route: 048
     Dates: start: 20101113, end: 20101117
  4. METOPROLOL TARTRATE [Concomitant]
     Indication: CORONARY ARTERY DISEASE
  5. TASIGNA [Suspect]
     Indication: CHRONIC MYELOID LEUKAEMIA
     Dosage: 400 MG, QD
     Route: 048
     Dates: start: 20080407, end: 20100901
  6. ASPIRIN [Concomitant]
     Indication: CORONARY ARTERY DISEASE
     Dosage: UNK
     Dates: start: 20100901
  7. PLAVIX [Concomitant]
     Indication: PROPHYLAXIS
     Dosage: UNK
     Dates: start: 20100905
  8. TASIGNA [Suspect]
     Dosage: 400 MG, QD
     Route: 048
     Dates: end: 20101112

REACTIONS (4)
  - ACUTE MYOCARDIAL INFARCTION [None]
  - ABDOMINAL PAIN UPPER [None]
  - CHEST PAIN [None]
  - CORONARY ARTERY DISEASE [None]
